FAERS Safety Report 5669840-5 (Version None)
Quarter: 2008Q1

REPORT INFORMATION
  Report Type: 
  Country: None (occurrence: None)
  Receive Date: 20080317
  Receipt Date: 20080305
  Transmission Date: 20080703
  Serious: Yes (Other)
  Sender: FDA-Public Use
  Company Number: US-PFIZER INC-2008007798

PATIENT
  Age: 51 Year
  Sex: Female

DRUGS (3)
  1. LYRICA [Suspect]
     Indication: NEUROPATHY PERIPHERAL
     Route: 048
     Dates: start: 20071101, end: 20071211
  2. ENALAPRIL MALEATE [Concomitant]
  3. LEXAPRO [Concomitant]

REACTIONS (5)
  - DERMATITIS [None]
  - DERMATITIS ALLERGIC [None]
  - DRUG ERUPTION [None]
  - ERYTHEMA ANNULARE [None]
  - GRANULOMA ANNULARE [None]
